FAERS Safety Report 14013569 (Version 1)
Quarter: 2017Q3

REPORT INFORMATION
  Report Type: Spontaneous
  Country: US (occurrence: US)
  Receive Date: 20170926
  Receipt Date: 20170926
  Transmission Date: 20171128
  Serious: No
  Sender: FDA-Public Use
  Company Number: US-ELI_LILLY_AND_COMPANY-US201708011446

PATIENT
  Age: 60 Year
  Sex: Male

DRUGS (2)
  1. GLIPIZIDE. [Concomitant]
     Active Substance: GLIPIZIDE
  2. BASAGLAR [Suspect]
     Active Substance: INSULIN GLARGINE
     Indication: PRODUCT USED FOR UNKNOWN INDICATION
     Dosage: 18 IU, DAILY
     Route: 065
     Dates: start: 201708

REACTIONS (1)
  - Underdose [Unknown]

NARRATIVE: CASE EVENT DATE: 20170826
